FAERS Safety Report 5081655-8 (Version None)
Quarter: 2006Q3

REPORT INFORMATION
  Report Type: 
  Country: None (occurrence: None)
  Receive Date: 20060811
  Receipt Date: 20060721
  Transmission Date: 20061208
  Serious: Yes (Other)
  Sender: FDA-Public Use
  Company Number: 0510015

PATIENT
  Age: 4 Month
  Sex: Male

DRUGS (6)
  1. ORFADIN [Suspect]
     Indication: TYROSINAEMIA
     Dosage: 0.5 MG/KG TWICE DAILY ORAL
     Route: 048
     Dates: start: 20050728
  2. LASILIX [Concomitant]
  3. ALDACTONE [Concomitant]
  4. PHOSPHORE [Concomitant]
  5. CALCIUM SUPP [Concomitant]
  6. DOLIPRANE [Concomitant]

REACTIONS (6)
  - ASCITES [None]
  - HAEMOGLOBIN DECREASED [None]
  - NEUTROPENIA [None]
  - PURPURA [None]
  - PYREXIA [None]
  - THROMBOCYTOPENIA [None]
